FAERS Safety Report 8950786 (Version 2)
Quarter: 2013Q1

REPORT INFORMATION
  Report Type: Report from Study
  Country: US (occurrence: US)
  Receive Date: 20121206
  Receipt Date: 20130108
  Transmission Date: 20140127
  Serious: Yes (Other)
  Sender: FDA-Public Use
  Company Number: US-ABBOTT-12P-163-1015823-00

PATIENT
  Age: 35 None
  Sex: Male
  Weight: 108.96 kg

DRUGS (2)
  1. HUMIRA [Suspect]
     Indication: PSORIASIS
     Dates: start: 20100514
  2. PERCOCET [Concomitant]
     Indication: PAIN
     Route: 048

REACTIONS (7)
  - Joint dislocation [Not Recovered/Not Resolved]
  - Meniscus operation [Not Recovered/Not Resolved]
  - Staphylococcal infection [Unknown]
  - Staphylococcal infection [Unknown]
  - Injection site pain [Unknown]
  - Drug dose omission [Unknown]
  - Device malfunction [Unknown]
